FAERS Safety Report 5168436-1 (Version None)
Quarter: 2006Q4

REPORT INFORMATION
  Report Type: 
  Country: None (occurrence: None)
  Receive Date: 20061208
  Receipt Date: 20060303
  Transmission Date: 20070319
  Serious: Yes (Congenital Anomaly)
  Sender: FDA-Public Use
  Company Number: GB-ROCHE-439304

PATIENT
  Sex: Female

DRUGS (4)
  1. ROACCUTANE [Suspect]
     Indication: ACNE
     Dosage: COURSE THREE.
     Dates: start: 20050715, end: 20051223
  2. ROACCUTANE [Suspect]
     Dosage: COURSE ONE.
  3. ROACCUTANE [Suspect]
     Dosage: COURSE TWO.
  4. DIANETTE [Concomitant]

REACTIONS (6)
  - BRAIN MALFORMATION [None]
  - CEREBELLAR HYPOPLASIA [None]
  - DRUG EXPOSURE DURING PREGNANCY [None]
  - HEAD CIRCUMFERENCE ABNORMAL [None]
  - HEART RATE INCREASED [None]
  - NEURODEVELOPMENTAL DISORDER [None]
